FAERS Safety Report 10362150 (Version 1)
Quarter: 2014Q1

REPORT INFORMATION
  Report Type: Report from Study
  Country: US (occurrence: None)
  Receive Date: 20140306
  Receipt Date: 20140306
  Transmission Date: 20141002
  Serious: Yes (Hospitalization)
  Sender: FDA-Public Use
  Company Number: 163-21880-13084083

PATIENT
  Age: 62 Year
  Sex: Female
  Weight: 84.5 kg

DRUGS (15)
  1. REVLIMID (LENALIDOMIDE) (CAPSULES) [Suspect]
     Indication: PLASMA CELL MYELOMA RECURRENT
     Route: 048
     Dates: start: 20130409, end: 20130818
  2. DEXAMETHASONE (DEXAMETHASONE) (UNKNOWN) [Suspect]
     Indication: PLASMA CELL MYELOMA RECURRENT
     Dosage: 4 IN 28 D, PO  04/09/2013 - 08/19/2013 THERAPY DATES
     Dates: start: 20130409, end: 20130819
  3. MLN 9708 [Suspect]
     Indication: PLASMA CELL MYELOMA RECURRENT
     Dosage: 3 IN 28 D, PO 04/09/13 - 08/12/2013 THERAPY DATES
     Dates: start: 20130409, end: 20130812
  4. AYCLOVIR (ACICLOVIR) [Concomitant]
  5. ASPIRIN (ACETYLSALICYCLIC ACID) [Concomitant]
  6. PLETAL (CILOSTAZOL) [Concomitant]
  7. HEMOCYTE-PLUS [Concomitant]
  8. LASIX (FUROSEMIDE) [Concomitant]
  9. ASPART (INSULIN ASPART) [Concomitant]
  10. LANTUS (INSULIN GLARGINE) [Concomitant]
  11. MAGNESIUM OXIDE [Concomitant]
  12. OXYCODONE [Concomitant]
  13. ALDACTONE (SPIRONOLACTONE) [Concomitant]
  14. CLINDAMYCIN [Concomitant]
  15. KEFLEX (CEFALEXIN MONOHYDRATE) [Concomitant]

REACTIONS (1)
  - Subcutaneous abscess [None]
